FAERS Safety Report 15770272 (Version 1)
Quarter: 2018Q4

REPORT INFORMATION
  Report Type: Spontaneous
  Country: US (occurrence: US)
  Receive Date: 20181227
  Receipt Date: 20181227
  Transmission Date: 20190205
  Serious: Yes (Death)
  Sender: FDA-Public Use
  Company Number: None

PATIENT
  Age: 68 Year
  Sex: Female

DRUGS (2)
  1. UNK [Concomitant]
     Active Substance: UNSPECIFIED INGREDIENT
  2. CAPECITABINE. [Suspect]
     Active Substance: CAPECITABINE
     Indication: RETROPERITONEAL CANCER
     Route: 048
     Dates: start: 20181122

REACTIONS (1)
  - Death [None]

NARRATIVE: CASE EVENT DATE: 20181130
